FAERS Safety Report 24839296 (Version 2)
Quarter: 2025Q1

REPORT INFORMATION
  Report Type: Report from Study
  Country: US (occurrence: US)
  Receive Date: 20250114
  Receipt Date: 20250121
  Transmission Date: 20250409
  Serious: Yes (Hospitalization)
  Sender: ABBVIE
  Company Number: US-ABBVIE-6082847

PATIENT
  Age: 82 Year
  Sex: Female

DRUGS (1)
  1. SKYRIZI [Suspect]
     Active Substance: RISANKIZUMAB-RZAA
     Indication: Psoriatic arthropathy
     Route: 058
     Dates: start: 20230614

REACTIONS (5)
  - Urosepsis [Recovered/Resolved]
  - Pain in extremity [Not Recovered/Not Resolved]
  - Mobility decreased [Unknown]
  - Joint swelling [Unknown]
  - Gait disturbance [Unknown]

NARRATIVE: CASE EVENT DATE: 20241101
